FAERS Safety Report 8266911-4 (Version None)
Quarter: 2012Q2

REPORT INFORMATION
  Report Type: 
  Country: None (occurrence: None)
  Receive Date: 20120409
  Receipt Date: 20120402
  Transmission Date: 20120825
  Serious: Yes (Death)
  Sender: FDA-Public Use
  Company Number: JP-ACCORD-012964

PATIENT
  Age: 59 Year
  Sex: Female

DRUGS (3)
  1. CISPLATIN [Suspect]
     Indication: SQUAMOUS CELL CARCINOMA
     Dosage: 60 MG/M2 ON DAY 2
  2. DOCETAXEL [Suspect]
     Indication: SQUAMOUS CELL CARCINOMA
     Dosage: BOLUS INJECTION OF 50 MG/M2
     Route: 042
  3. FLUOROURACIL [Suspect]
     Indication: SQUAMOUS CELL CARCINOMA
     Dosage: CONTINUOUS IV OF 600 TO 700 MG/M2 FROM DAY 1 THROUGH DAY 5
     Route: 042

REACTIONS (2)
  - ACUTE ABDOMEN [None]
  - OFF LABEL USE [None]
